FAERS Safety Report 17354271 (Version 1)
Quarter: 2020Q1

REPORT INFORMATION
  Report Type: Spontaneous
  Country: US (occurrence: US)
  Receive Date: 20200127
  Receipt Date: 20200127
  Transmission Date: 20200409
  Serious: No
  Sender: FDA-Public Use
  Company Number: US-009507513-2001USA007633

PATIENT
  Sex: Female

DRUGS (3)
  1. INTRON A [Suspect]
     Active Substance: INTERFERON ALFA-2B
     Indication: CHRONIC HEPATITIS C
     Dosage: CONCENTRATION: 25 MU MDV (10 MU/ML), DOSE: 25 MU MDV (10 MU/ML), 3 TIMES WEEKLY; ROUTE OF ADMINISTRA
     Dates: start: 20190119
  2. PREDNISONE. [Suspect]
     Active Substance: PREDNISONE
     Dosage: STOP DATE REPORTED AS 26-JUL-2020
     Dates: start: 20200108
  3. INSULIN LISPRO [Concomitant]
     Active Substance: INSULIN LISPRO
     Dosage: CONCENTRATION: 100 U/ML; STOP DATE REPORTED AS: 10-MAR-2020
     Dates: start: 20191217, end: 2020

REACTIONS (1)
  - Fatigue [Not Recovered/Not Resolved]
